FAERS Safety Report 11618879 (Version 1)
Quarter: 2015Q4

REPORT INFORMATION
  Report Type: Report from Study
  Country: US (occurrence: US)
  Receive Date: 20151012
  Receipt Date: 20151012
  Transmission Date: 20160304
  Serious: Yes (Hospitalization, Other)
  Sender: FDA-Public Use
  Company Number: US-ABBVIE-15K-163-1437160-00

PATIENT
  Age: 57 Year
  Sex: Female
  Weight: 75.82 kg

DRUGS (1)
  1. HUMIRA [Suspect]
     Active Substance: ADALIMUMAB
     Indication: RHEUMATOID ARTHRITIS
     Route: 058
     Dates: start: 201506

REACTIONS (6)
  - Vomiting [Unknown]
  - Nausea [Unknown]
  - Headache [Unknown]
  - Hypersensitivity [Recovered/Resolved]
  - Swelling face [Unknown]
  - Alopecia [Unknown]

NARRATIVE: CASE EVENT DATE: 20150629
